FAERS Safety Report 19482848 (Version 1)
Quarter: 2021Q3

REPORT INFORMATION
  Report Type: Spontaneous
  Country: US (occurrence: US)
  Receive Date: 20210701
  Receipt Date: 20210701
  Transmission Date: 20211014
  Serious: No
  Sender: FDA-Public Use
  Company Number: US-DRREDDYS-SPO/USA/21/0136994

PATIENT
  Age: 71 Year
  Sex: Female
  Weight: 56.7 kg

DRUGS (1)
  1. HABITROL [Suspect]
     Active Substance: NICOTINE
     Indication: TOBACCO USER
     Route: 062
     Dates: start: 20210622

REACTIONS (3)
  - Expired product administered [Unknown]
  - Hypertension [Unknown]
  - Dry mouth [Unknown]
